FAERS Safety Report 23655897 (Version 1)
Quarter: 2024Q1

REPORT INFORMATION
  Report Type: Spontaneous
  Country: CN (occurrence: None)
  Receive Date: 20240321
  Receipt Date: 20240321
  Transmission Date: 20240410
  Serious: Yes (Other)
  Sender: FDA-Public Use
  Company Number: CN-ROCHE-3529032

PATIENT
  Age: 60 Year
  Sex: Female
  Weight: 52 kg

DRUGS (5)
  1. PERJETA [Suspect]
     Active Substance: PERTUZUMAB
     Indication: Invasive lobular breast carcinoma
     Route: 041
     Dates: start: 20240219
  2. HERCEPTIN [Suspect]
     Active Substance: TRASTUZUMAB
     Indication: Invasive lobular breast carcinoma
     Route: 041
     Dates: start: 20240219, end: 20240219
  3. HERCEPTIN [Suspect]
     Active Substance: TRASTUZUMAB
     Route: 041
     Dates: start: 20240220
  4. PACLITAXEL [Suspect]
     Active Substance: PACLITAXEL
     Indication: Invasive lobular breast carcinoma
     Route: 041
     Dates: start: 20240220
  5. CARBOPLATIN [Suspect]
     Active Substance: CARBOPLATIN
     Indication: Invasive lobular breast carcinoma
     Route: 041
     Dates: start: 20240220

REACTIONS (1)
  - Myelosuppression [Recovering/Resolving]

NARRATIVE: CASE EVENT DATE: 20240226
